FAERS Safety Report 8817744 (Version 1)
Quarter: 2012Q4

REPORT INFORMATION
  Report Type: 
  Country: US (occurrence: US)
  Receive Date: 20121001
  Receipt Date: 20121001
  Transmission Date: 20130627
  Serious: No
  Sender: FDA-Public Use
  Company Number: US-PFIZER INC-2012241900

PATIENT
  Age: 35 Year
  Sex: Female
  Weight: 64.4 kg

DRUGS (2)
  1. NEURONTIN [Suspect]
     Indication: NEUROPATHY PERIPHERAL
     Dosage: 400 mg, 3x/day
  2. NORCO [Suspect]
     Indication: HEADACHE
     Dosage: UNK

REACTIONS (2)
  - Headache [Unknown]
  - Visual impairment [Recovered/Resolved]
